FAERS Safety Report 8307335-0 (Version None)
Quarter: 2012Q2

REPORT INFORMATION
  Report Type: 
  Country: None (occurrence: None)
  Receive Date: 20120420
  Receipt Date: 20120411
  Transmission Date: 20120825
  Serious: Yes (Hospitalization)
  Sender: FDA-Public Use
  Company Number: 2011S1001679

PATIENT
  Age: 48 Year
  Sex: Male
  Weight: 89 kg

DRUGS (7)
  1. PLAVIX [Suspect]
     Indication: MYOCARDIAL INFARCTION
     Dosage: 75 MG;1X;PO
     Route: 048
     Dates: start: 20110919, end: 20111024
  2. IRBETAN [Concomitant]
  3. BISOPROLOL FUMARATE [Concomitant]
  4. ASPIRIN [Concomitant]
  5. SIGMART [Concomitant]
  6. LANSOPRAZOLE [Concomitant]
  7. LIVALO [Suspect]
     Indication: HYPERCHOLESTEROLAEMIA
     Dosage: 1 MG;1X;PO
     Route: 048
     Dates: start: 20110919, end: 20111019

REACTIONS (3)
  - FEELING ABNORMAL [None]
  - RHABDOMYOLYSIS [None]
  - EOSINOPHIL COUNT DECREASED [None]
